FAERS Safety Report 8274947-2 (Version None)
Quarter: 2012Q2

REPORT INFORMATION
  Report Type: 
  Country: None (occurrence: None)
  Receive Date: 20120411
  Receipt Date: 20120404
  Transmission Date: 20120825
  Serious: Yes (Hospitalization, Other)
  Sender: FDA-Public Use
  Company Number: US-MUTUAL PHARMACEUTICAL COMPANY, INC.-BCTM20120016

PATIENT
  Sex: Female
  Weight: 95.34 kg

DRUGS (7)
  1. SIMVASTATIN [Concomitant]
     Indication: BLOOD CHOLESTEROL INCREASED
     Route: 048
  2. HYDROCHLOROTHIAZIDE [Concomitant]
     Indication: HYPERTENSION
     Route: 048
  3. BACTRIM [Suspect]
     Indication: CYSTITIS
     Route: 048
     Dates: start: 20110101, end: 20110101
  4. LOSARTAN POTASSIUM [Concomitant]
     Indication: HYPERTENSION
     Route: 048
  5. BENADRYL [Concomitant]
     Indication: SEASONAL ALLERGY
     Route: 048
     Dates: end: 20110101
  6. GLYBURIDE AND METFORMIN HYDROCHLORIDE [Concomitant]
     Indication: DIABETES MELLITUS
     Route: 048
     Dates: end: 20120101
  7. INNOPRAN XL [Concomitant]
     Indication: ARRHYTHMIA
     Route: 048

REACTIONS (2)
  - BLISTER [None]
  - ANAPHYLACTIC REACTION [None]
